FAERS Safety Report 7022551-6 (Version None)
Quarter: 2010Q3

REPORT INFORMATION
  Report Type: 
  Country: None (occurrence: None)
  Receive Date: 20100930
  Receipt Date: 20100922
  Transmission Date: 20110219
  Serious: No
  Sender: FDA-Public Use
  Company Number: US-B.I. PHARMACEUTICALS,INC./RIDGEFIELD-2010-BP-10812BP

PATIENT
  Sex: Female

DRUGS (2)
  1. MICARDIS HCT [Suspect]
     Indication: HYPERTENSION
     Route: 048
     Dates: start: 20100301
  2. ASPIRIN [Concomitant]
     Indication: PROPHYLAXIS

REACTIONS (10)
  - DIZZINESS [None]
  - HYPERSOMNIA [None]
  - LOCAL SWELLING [None]
  - MUSCLE TWITCHING [None]
  - OEDEMA PERIPHERAL [None]
  - RED BLOOD CELL SEDIMENTATION RATE INCREASED [None]
  - SKIN DISORDER [None]
  - SUNBURN [None]
  - THYROXINE DECREASED [None]
  - URINARY TRACT INFECTION [None]
